FAERS Safety Report 11057544 (Version 1)
Quarter: 2015Q2

REPORT INFORMATION
  Report Type: Spontaneous
  Country: DE (occurrence: DE)
  Receive Date: 20150422
  Receipt Date: 20150422
  Transmission Date: 20150821
  Serious: Yes (Congenital Anomaly)
  Sender: FDA-Public Use
  Company Number: DE-009507513-1504DEU018467

PATIENT
  Sex: Male

DRUGS (1)
  1. PROPECIA [Suspect]
     Active Substance: FINASTERIDE
     Dosage: UNK
     Route: 064

REACTIONS (3)
  - Congenital urethral anomaly [Unknown]
  - Exposure via father [Recovered/Resolved]
  - Foetal exposure during pregnancy [Recovered/Resolved]
